FAERS Safety Report 4534169-5 (Version None)
Quarter: 2004Q4

REPORT INFORMATION
  Report Type: 
  Country: None (occurrence: None)
  Receive Date: 20041221
  Receipt Date: 20041221
  Transmission Date: 20050328
  Serious: Yes (Other)
  Sender: FDA-Public Use
  Company Number: None

PATIENT
  Age: 30 Year
  Sex: Male
  Weight: 90.2658 kg

DRUGS (1)
  1. BACTRIM DS [Suspect]
     Indication: SKIN DISORDER
     Dosage: 800/160   2 TIMES A DAY   ORAL
     Route: 048
     Dates: start: 20041130, end: 20041203

REACTIONS (5)
  - CRYING [None]
  - ERYTHEMA [None]
  - PYREXIA [None]
  - RASH PRURITIC [None]
  - SKIN IRRITATION [None]
